FAERS Safety Report 15182853 (Version 1)
Quarter: 2018Q3

REPORT INFORMATION
  Report Type: Spontaneous
  Country: FR (occurrence: FR)
  Receive Date: 20180723
  Receipt Date: 20180723
  Transmission Date: 20181010
  Serious: Yes (Disabling)
  Sender: FDA-Public Use
  Company Number: FR-JNJFOC-20180723303

PATIENT
  Age: 77 Year
  Sex: Female
  Weight: 74.97 kg

DRUGS (7)
  1. METFORMINE [Concomitant]
     Active Substance: METFORMIN HYDROCHLORIDE
     Route: 065
  2. CORDARONE [Concomitant]
     Active Substance: AMIODARONE HYDROCHLORIDE
     Route: 065
  3. XARELTO [Suspect]
     Active Substance: RIVAROXABAN
     Indication: ATRIAL FIBRILLATION
     Route: 048
     Dates: end: 20180208
  4. COVERAM [Concomitant]
     Active Substance: AMLODIPINE\PERINDOPRIL
     Route: 065
  5. CATAPRESSAN [Concomitant]
     Active Substance: CLONIDINE
     Route: 065
  6. BISOHEXAL [Concomitant]
     Active Substance: BISOPROLOL FUMARATE
     Route: 065
  7. CALCIUM CARBONATE W/COLECALCIFEROL [Concomitant]
     Active Substance: CALCIUM CARBONATE\CHOLECALCIFEROL
     Route: 065

REACTIONS (2)
  - Paraplegia [Not Recovered/Not Resolved]
  - Extradural haematoma [Not Recovered/Not Resolved]

NARRATIVE: CASE EVENT DATE: 20180208
